FAERS Safety Report 23837729 (Version 3)
Quarter: 2025Q3

REPORT INFORMATION
  Report Type: Spontaneous
  Country: US (occurrence: US)
  Receive Date: 20240509
  Receipt Date: 20250721
  Transmission Date: 20251020
  Serious: No
  Sender: SANOFI AVENTIS
  Company Number: US-SA-SAC20240430001481

PATIENT
  Age: 75 Year
  Sex: Female
  Weight: 77.7 kg

DRUGS (2)
  1. DUPIXENT [Suspect]
     Active Substance: DUPILUMAB
     Indication: Neurodermatitis
     Dosage: 300 MG, QOW
     Route: 058
  2. DUPIXENT [Suspect]
     Active Substance: DUPILUMAB
     Indication: Dermatitis atopic

REACTIONS (5)
  - Rash erythematous [Unknown]
  - Rash [Unknown]
  - Intentional product misuse [Unknown]
  - Eczema [Unknown]
  - Off label use [Unknown]

NARRATIVE: CASE EVENT DATE: 20231101
